FAERS Safety Report 5788025-5 (Version None)
Quarter: 2008Q2

REPORT INFORMATION
  Report Type: 
  Country: None (occurrence: None)
  Receive Date: 20080625
  Receipt Date: 20080617
  Transmission Date: 20081010
  Serious: Yes (Other)
  Sender: FDA-Public Use
  Company Number: US-ELI_LILLY_AND_COMPANY-US200806003833

PATIENT
  Age: 68 Year
  Sex: Female

DRUGS (13)
  1. PROZAC [Suspect]
     Indication: MAJOR DEPRESSION
     Dosage: 20 MG, 2/D
  2. METFORMIN HCL [Concomitant]
     Dosage: 500 MG, 2/D
  3. FUROSEMIDE [Concomitant]
  4. PREMARIN [Concomitant]
     Dosage: 0.45 MG, DAILY (1/D)
  5. NEXIUM [Concomitant]
     Dosage: 40 MG, DAILY (1/D)
  6. INDERAL [Concomitant]
     Dosage: 80 MG, DAILY (1/D)
  7. DIGOXIN [Concomitant]
     Dosage: 0.25 MG, UNK
  8. TRANXENE [Concomitant]
  9. DESIPRAMINE HCL [Concomitant]
  10. LOVASTATIN [Concomitant]
     Dosage: 40 MG, DAILY (1/D)
  11. ASPIRIN [Concomitant]
  12. POTASSIUM CHLORIDE [Concomitant]
  13. MACROBID [Concomitant]

REACTIONS (6)
  - CARDIAC DISORDER [None]
  - CARDIAC FAILURE CONGESTIVE [None]
  - DIABETES MELLITUS [None]
  - FALL [None]
  - JAW FRACTURE [None]
  - VERTEBRAL INJURY [None]
